FAERS Safety Report 23448268 (Version 1)
Quarter: 2024Q1

REPORT INFORMATION
  Report Type: Report from Study
  Country: TW (occurrence: TW)
  Receive Date: 20240127
  Receipt Date: 20240127
  Transmission Date: 20240410
  Serious: Yes (Hospitalization, Other)
  Sender: FDA-Public Use
  Company Number: TW-ABBVIE-5601318

PATIENT
  Age: 71 Year
  Sex: Female

DRUGS (1)
  1. UPADACITINIB [Suspect]
     Active Substance: UPADACITINIB
     Indication: Rheumatoid arthritis
     Route: 048
     Dates: start: 20231003, end: 20240108

REACTIONS (8)
  - Cholecystitis acute [Recovered/Resolved]
  - Prothrombin time prolonged [Unknown]
  - Bile duct stone [Unknown]
  - Hepatic cirrhosis [Unknown]
  - Ascites [Unknown]
  - Portal hypertensive colopathy [Unknown]
  - Haemoglobin decreased [Unknown]
  - Portal shunt [Unknown]

NARRATIVE: CASE EVENT DATE: 20231207
